FAERS Safety Report 5612513-5 (Version None)
Quarter: 2008Q1

REPORT INFORMATION
  Report Type: 
  Country: None (occurrence: None)
  Receive Date: 20080204
  Receipt Date: 20080131
  Transmission Date: 20080703
  Serious: Yes (Hospitalization)
  Sender: FDA-Public Use
  Company Number: US-BRISTOL-MYERS SQUIBB COMPANY-14060370

PATIENT
  Age: 67 Year
  Sex: Male

DRUGS (3)
  1. CETUXIMAB [Suspect]
     Indication: METASTATIC GASTRIC CANCER
     Dosage: TREATMENT START DATE -22 OCT 2007 AND ALSO TAKEN ON 2 JAN 2008
     Dates: start: 20080109, end: 20080109
  2. CISPLATIN [Suspect]
     Indication: METASTATIC GASTRIC CANCER
     Dosage: TREATMENT START DATE -22 OCT 2007 AND ALSO TAKEN ON 2 JAN 2008
     Dates: start: 20080109, end: 20080109
  3. IRINOTECAN [Suspect]
     Indication: METASTATIC GASTRIC CANCER
     Dosage: TREATMENT START DATE -22 OCT 2007 AND ALSO TAKEN ON 2 JAN 2008
     Dates: start: 20080109, end: 20080109

REACTIONS (3)
  - ANAEMIA [None]
  - FEBRILE NEUTROPENIA [None]
  - HYPOMAGNESAEMIA [None]
